FAERS Safety Report 14368601 (Version 2)
Quarter: 2018Q1

REPORT INFORMATION
  Report Type: Spontaneous
  Country: US (occurrence: US)
  Receive Date: 20180109
  Receipt Date: 20180111
  Transmission Date: 20180509
  Serious: No
  Sender: FDA-Public Use
  Company Number: US-ACTELION-A-NJ2018-165434

PATIENT
  Age: 61 Year
  Sex: Female

DRUGS (1)
  1. TRACLEER [Suspect]
     Active Substance: BOSENTAN
     Indication: PULMONARY HYPERTENSION
     Dosage: 125 MG, QD
     Route: 048

REACTIONS (5)
  - Haemorrhage [Unknown]
  - Dyspnoea [Unknown]
  - Fall [Unknown]
  - Swelling [Unknown]
  - Head injury [Unknown]

NARRATIVE: CASE EVENT DATE: 20180102
